FAERS Safety Report 11997206 (Version 4)
Quarter: 2016Q3

REPORT INFORMATION
  Report Type: Report from Study
  Country: US (occurrence: US)
  Receive Date: 20160203
  Receipt Date: 20160701
  Transmission Date: 20161109
  Serious: Yes (Other)
  Sender: FDA-Public Use
  Company Number: US-AMGEN-USASL2016011499

PATIENT
  Age: 73 Year
  Sex: Female

DRUGS (3)
  1. ENBREL [Suspect]
     Active Substance: ETANERCEPT
     Indication: PSORIASIS
     Dosage: 50 MG, ONCE A WEEK
     Route: 065
     Dates: start: 20141022
  2. ENBREL [Suspect]
     Active Substance: ETANERCEPT
     Indication: PSORIATIC ARTHROPATHY
  3. INSULIN [Concomitant]
     Active Substance: INSULIN NOS
     Dosage: UNK

REACTIONS (18)
  - Alopecia [Unknown]
  - Depression [Unknown]
  - Diabetes mellitus [Unknown]
  - Cataract [Unknown]
  - Mobility decreased [Not Recovered/Not Resolved]
  - Cardiac disorder [Unknown]
  - Injection site pain [Recovered/Resolved]
  - Hypoacusis [Unknown]
  - Memory impairment [Unknown]
  - Abasia [Not Recovered/Not Resolved]
  - Hyperhidrosis [Unknown]
  - Impaired driving ability [Not Recovered/Not Resolved]
  - Keloid scar [Unknown]
  - Asthma [Unknown]
  - Pain in extremity [Not Recovered/Not Resolved]
  - Scar [Not Recovered/Not Resolved]
  - Psoriasis [Not Recovered/Not Resolved]
  - Arthralgia [Not Recovered/Not Resolved]
